FAERS Safety Report 6569255-1 (Version None)
Quarter: 2010Q1

REPORT INFORMATION
  Report Type: 
  Country: None (occurrence: None)
  Receive Date: 20100201
  Receipt Date: 20100201
  Transmission Date: 20100710
  Serious: Yes (Hospitalization)
  Sender: FDA-Public Use
  Company Number: None

PATIENT
  Sex: Female

DRUGS (10)
  1. ZOLEDRONIC-ACID [Suspect]
     Indication: NAUSEA
  2. ZOLEDRONIC-ACID [Suspect]
     Indication: VOMITING
  3. ASPIRIN [Concomitant]
  4. METOPROLOL TARTRATE [Concomitant]
  5. LEVOTHYROXINE SODIUM [Concomitant]
  6. ALBUTEROL [Concomitant]
  7. PANTOPRAZOLE [Concomitant]
  8. AMLODIPINE [Concomitant]
  9. LOVASTATIN [Concomitant]
  10. NITROGLYCERIN [Concomitant]

REACTIONS (1)
  - RHABDOMYOLYSIS [None]
